FAERS Safety Report 21064539 (Version 1)
Quarter: 2022Q3

REPORT INFORMATION
  Report Type: Spontaneous
  Country: US (occurrence: US)
  Receive Date: 20220711
  Receipt Date: 20220711
  Transmission Date: 20221026
  Serious: No
  Sender: FDA-Public Use
  Company Number: US-FERRINGPH-2021FE06345

PATIENT
  Age: 30 Year
  Sex: Male
  Weight: 95.238 kg

DRUGS (3)
  1. ZOMACTON [Suspect]
     Active Substance: SOMATROPIN
     Indication: Premature ageing
     Dosage: UNK
     Route: 065
  2. ZOMACTON [Suspect]
     Active Substance: SOMATROPIN
     Indication: Arthralgia
  3. ZOMACTON [Suspect]
     Active Substance: SOMATROPIN
     Indication: Sleep disorder

REACTIONS (5)
  - Insulin-like growth factor abnormal [Not Recovered/Not Resolved]
  - Off label use [Unknown]
  - Product use in unapproved indication [Unknown]
  - Counterfeit product administered [Unknown]
  - Device issue [Unknown]
